FAERS Safety Report 9721554 (Version 3)
Quarter: 2014Q2

REPORT INFORMATION
  Report Type: Spontaneous
  Country: JP (occurrence: JP)
  Receive Date: 20131130
  Receipt Date: 20140503
  Transmission Date: 20141212
  Serious: Yes (Life-Threatening, Other)
  Sender: FDA-Public Use
  Company Number: PHHY2013JP037691

PATIENT
  Age: 49 Year
  Sex: Female
  Weight: 40 kg

DRUGS (11)
  1. NEORAL [Suspect]
     Indication: DERMATOMYOSITIS
     Dosage: 220 MG, DAILY
     Route: 048
     Dates: start: 20120622, end: 20120719
  2. NEORAL [Suspect]
     Indication: INTERSTITIAL LUNG DISEASE
     Dosage: 4 MG/KG
  3. PREDONINE [Suspect]
     Indication: INTERSTITIAL LUNG DISEASE
     Dosage: 40 ML, DAILY
     Route: 042
     Dates: start: 20120622
  4. ENDOXAN [Suspect]
     Indication: INTERSTITIAL LUNG DISEASE
     Dosage: 700 MG/ BODY
     Dates: start: 201206
  5. FUNGUARD [Concomitant]
     Dosage: 150 MG, UNK
     Route: 042
     Dates: start: 20120626, end: 20120718
  6. ZOSYN [Concomitant]
     Dosage: 135 G
     Route: 042
     Dates: start: 20120718, end: 20120719
  7. DENOSINE [Concomitant]
     Dosage: 400 MG
     Route: 042
     Dates: start: 20120717, end: 20120911
  8. OMEPRAL [Concomitant]
     Indication: GASTRITIS
     Dosage: 400 MG, UNK
     Route: 042
     Dates: start: 20120718, end: 20120803
  9. BAKTAR [Concomitant]
     Indication: ANTIFUNGAL PROPHYLAXIS
     Route: 048
     Dates: start: 20120625
  10. BIO-THREE [Concomitant]
     Indication: GASTROENTERITIS
     Dosage: 3 G, UNK
     Route: 048
     Dates: start: 20120622, end: 20120718
  11. MYCOPHENOLATE MOFETIL [Concomitant]

REACTIONS (11)
  - Thrombotic microangiopathy [Recovering/Resolving]
  - Thrombocytopenia [Recovering/Resolving]
  - Red blood cell schistocytes present [Unknown]
  - Renal impairment [Recovering/Resolving]
  - Haemolytic anaemia [Recovering/Resolving]
  - Posterior reversible encephalopathy syndrome [Recovering/Resolving]
  - Generalised tonic-clonic seizure [Recovering/Resolving]
  - Altered state of consciousness [Recovering/Resolving]
  - Pneumomediastinum [Unknown]
  - Respiratory failure [Recovering/Resolving]
  - Drug resistance [Unknown]
